FAERS Safety Report 23398119 (Version 3)
Quarter: 2024Q1

REPORT INFORMATION
  Report Type: Spontaneous
  Country: CH (occurrence: CH)
  Receive Date: 20240112
  Receipt Date: 20240129
  Transmission Date: 20240409
  Serious: Yes (Other)
  Sender: FDA-Public Use
  Company Number: CH-TEVA-VS-3142082

PATIENT
  Age: 60 Year
  Sex: Female

DRUGS (2)
  1. PACLITAXEL [Suspect]
     Active Substance: PACLITAXEL
     Indication: Product used for unknown indication
     Dosage: DOSAGE: 6 MG/ML 30MG/50ML,  SPEED OF ADMINISTRATION ONE HOUR, SOLVENT NACL 0.9%
     Route: 065
  2. RAMUCIRUMAB [Concomitant]
     Active Substance: RAMUCIRUMAB

REACTIONS (5)
  - Anaphylactic reaction [Unknown]
  - Cyanosis [Unknown]
  - Dyspnoea [Unknown]
  - Chest discomfort [Unknown]
  - Infusion related reaction [Unknown]

NARRATIVE: CASE EVENT DATE: 20231120
